FAERS Safety Report 7822347-9 (Version None)
Quarter: 2011Q4

REPORT INFORMATION
  Report Type: 
  Country: None (occurrence: None)
  Receive Date: 20111018
  Receipt Date: 20111007
  Transmission Date: 20120403
  Serious: Yes (Other)
  Sender: FDA-Public Use
  Company Number: US-ELI_LILLY_AND_COMPANY-US201110002271

PATIENT
  Sex: Female

DRUGS (5)
  1. HUMALOG [Suspect]
     Indication: DIABETES MELLITUS
     Dosage: UNK UNK, PRN
     Dates: start: 20060101
  2. LANTUS [Concomitant]
     Dosage: UNK, EACH EVENING
  3. PREDNISONE [Concomitant]
     Indication: FIBROMYALGIA
     Dosage: UNK
  4. HUMALOG [Suspect]
     Dosage: UNK UNK, TID
     Dates: start: 20060101
  5. NEURONTIN [Concomitant]
     Dosage: UNK

REACTIONS (7)
  - NON-HODGKIN'S LYMPHOMA [None]
  - RENAL FAILURE [None]
  - TREMOR [None]
  - VISUAL ACUITY REDUCED [None]
  - OSTEONECROSIS [None]
  - BLOOD GLUCOSE INCREASED [None]
  - HEPATOMEGALY [None]
